FAERS Safety Report 7222513-X (Version None)
Quarter: 2011Q1

REPORT INFORMATION
  Report Type: 
  Country: None (occurrence: None)
  Receive Date: 20110104
  Receipt Date: 20101223
  Transmission Date: 20110831
  Serious: Yes (Hospitalization, Other)
  Sender: FDA-Public Use
  Company Number: 2010AP002690

PATIENT
  Age: 30 Year
  Sex: Female

DRUGS (9)
  1. CITALOPRAM HYDROBROMIDE [Suspect]
     Dosage: 20 MG;
  2. BENZODIAZEPINE DERIVATIVES (BENZODIAZEPINE DERIVATIVES) [Suspect]
  3. HEROIN (DIAMORPHINE) [Suspect]
     Indication: DRUG ABUSE
     Dosage: QD
  4. METHADONE HCL [Suspect]
     Dosage: 80 MG;
  5. COCAINE (COCAINE) [Suspect]
     Indication: DRUG ABUSE
  6. CODEINE (CODEINE) [Suspect]
  7. AMPHETAMINE SALTS (AMFETAMINE SULFATE) [Suspect]
  8. ETHANOL (ETHANOL) [Suspect]
  9. CANNABIS (CANNABIS SATIVA) [Suspect]
     Indication: DRUG ABUSE

REACTIONS (13)
  - HYPOKALAEMIA [None]
  - REFUSAL OF TREATMENT BY PATIENT [None]
  - GAMMA-GLUTAMYLTRANSFERASE INCREASED [None]
  - ELECTROCARDIOGRAM T WAVE INVERSION [None]
  - SOMNOLENCE [None]
  - SYNCOPE [None]
  - ELECTROCARDIOGRAM ST SEGMENT ABNORMAL [None]
  - ALANINE AMINOTRANSFERASE INCREASED [None]
  - ASPARTATE AMINOTRANSFERASE INCREASED [None]
  - ACUTE CORONARY SYNDROME [None]
  - ELECTROCARDIOGRAM QT PROLONGED [None]
  - TOXICITY TO VARIOUS AGENTS [None]
  - METABOLIC DISORDER [None]
